FAERS Safety Report 21228775 (Version 3)
Quarter: 2022Q4

REPORT INFORMATION
  Report Type: Spontaneous
  Country: JP (occurrence: JP)
  Receive Date: 20220818
  Receipt Date: 20221103
  Transmission Date: 20230113
  Serious: No
  Sender: FDA-Public Use
  Company Number: JP-Eisai-202206071_LEN-TMC_P_1

PATIENT
  Sex: Female

DRUGS (1)
  1. LENVIMA [Suspect]
     Active Substance: LENVATINIB
     Indication: Thymic carcinoma
     Route: 048

REACTIONS (3)
  - Malaise [Unknown]
  - Diarrhoea [Recovered/Resolved]
  - Hypertension [Unknown]
